FAERS Safety Report 4827982-8 (Version None)
Quarter: 2005Q4

REPORT INFORMATION
  Report Type: 
  Country: None (occurrence: None)
  Receive Date: 20051115
  Receipt Date: 20051103
  Transmission Date: 20060501
  Serious: Yes (Hospitalization)
  Sender: FDA-Public Use
  Company Number: FR-AMGEN-UK156720

PATIENT
  Age: 38 Year
  Sex: Female
  Weight: 108 kg

DRUGS (16)
  1. ARANESP [Suspect]
     Indication: ANAEMIA OF MALIGNANT DISEASE
     Route: 058
     Dates: end: 20051005
  2. ENDOXAN [Suspect]
     Route: 042
     Dates: start: 20050408, end: 20050823
  3. LUTENYL [Suspect]
     Route: 048
     Dates: end: 20051005
  4. DOXORUBICIN HCL [Suspect]
     Route: 042
     Dates: start: 20050408, end: 20050823
  5. ETOPOSIDE [Suspect]
     Route: 042
     Dates: start: 20050408, end: 20050823
  6. RITUXIMAB [Suspect]
     Route: 042
     Dates: start: 20050408, end: 20050823
  7. INTERFERON ALFA [Concomitant]
     Route: 065
  8. SOLU-MEDROL [Concomitant]
     Route: 065
  9. DEXTROPROPOXYPHENE HCL/PARACETAMOL [Concomitant]
     Route: 065
  10. MOPRAL [Concomitant]
     Route: 065
  11. PRIMPERAN INJ [Concomitant]
     Route: 065
  12. PAROXETINE HCL [Concomitant]
     Route: 065
  13. IRON [Concomitant]
     Route: 065
  14. VITAMIN B COMPLEX CAP [Concomitant]
     Route: 065
  15. FLUCONAZOLE [Concomitant]
     Route: 065
  16. FLAGYL [Concomitant]
     Route: 065

REACTIONS (13)
  - CATHETER RELATED INFECTION [None]
  - CYANOSIS [None]
  - DIARRHOEA [None]
  - DYSPNOEA [None]
  - GROIN PAIN [None]
  - INFECTION [None]
  - ORAL CANDIDIASIS [None]
  - PAIN IN EXTREMITY [None]
  - PHLEBITIS [None]
  - PULMONARY EMBOLISM [None]
  - STAPHYLOCOCCAL SEPSIS [None]
  - THROMBOSIS [None]
  - VENOUS THROMBOSIS LIMB [None]
